FAERS Safety Report 7025315-2 (Version None)
Quarter: 2010Q4

REPORT INFORMATION
  Report Type: 
  Country: None (occurrence: None)
  Receive Date: 20101001
  Receipt Date: 20100928
  Transmission Date: 20110411
  Serious: Yes (Hospitalization)
  Sender: FDA-Public Use
  Company Number: GB-SANOFI-AVENTIS-2009SA003576

PATIENT
  Age: 67 Year
  Sex: Male
  Weight: 110.5 kg

DRUGS (12)
  1. AFLIBERCEPT [Suspect]
     Route: 042
     Dates: start: 20091111, end: 20091111
  2. DOCETAXEL [Suspect]
     Route: 042
     Dates: start: 20091111, end: 20091111
  3. PREDNISOLONE [Suspect]
     Route: 048
     Dates: start: 20091111, end: 20091116
  4. ZOLADEX [Concomitant]
     Indication: HORMONE REPLACEMENT THERAPY
     Dates: start: 20090723
  5. TAMSULOSIN [Concomitant]
     Dates: start: 20081101
  6. OMEPRAZOLE [Concomitant]
     Dates: start: 20091001
  7. SYMBICORT [Concomitant]
     Dates: start: 19990101
  8. CHONDROITIN W/GLUCOSAMINE [Concomitant]
     Dates: start: 20060101
  9. VITAMIN C WITH ZINC [Concomitant]
     Dates: start: 20060101
  10. NULYTELY [Concomitant]
     Dates: start: 20091104
  11. SENNA [Concomitant]
     Dates: start: 20091111
  12. LACTULOSE [Concomitant]
     Dates: start: 20091111

REACTIONS (2)
  - HYPOCALCAEMIA [None]
  - NEUTROPENIA [None]
